FAERS Safety Report 15142753 (Version 1)
Quarter: 2018Q3

REPORT INFORMATION
  Report Type: Spontaneous
  Country: US (occurrence: US)
  Receive Date: 20180618
  Receipt Date: 20180618
  Transmission Date: 20181010
  Serious: No
  Sender: FDA-Public Use
  Company Number: None

PATIENT
  Age: 50 Year
  Sex: Female

DRUGS (1)
  1. BENLYSTA [Suspect]
     Active Substance: BELIMUMAB

REACTIONS (4)
  - Myalgia [None]
  - Drug dose omission [None]
  - Muscle tightness [None]
  - Manufacturing product shipping issue [None]

NARRATIVE: CASE EVENT DATE: 20180618
